FAERS Safety Report 4569632-4 (Version None)
Quarter: 2005Q1

REPORT INFORMATION
  Report Type: 
  Country: None (occurrence: None)
  Receive Date: 20050203
  Receipt Date: 20050120
  Transmission Date: 20050727
  Serious: Yes (Death, Hospitalization, Other)
  Sender: FDA-Public Use
  Company Number: DE-ABBOTT-05P-062-0288993-00

PATIENT
  Age: 10 Year
  Sex: Male

DRUGS (16)
  1. CLARITHROMYCIN [Suspect]
     Indication: MYCOBACTERIUM AVIUM COMPLEX INFECTION
     Dosage: STANDARD DOSAGE
  2. CLARITHROMYCIN [Suspect]
     Indication: OSTEOMYELITIS
     Dosage: NOT REPORTED
  3. INTERFERON GAMMA [Suspect]
     Indication: MYCOBACTERIUM AVIUM COMPLEX INFECTION
     Dosage: 50 MCG/M2/DAY
     Route: 058
  4. INTERFERON GAMMA [Suspect]
     Indication: OSTEOMYELITIS
  5. ETHAMBUTOL HCL [Suspect]
     Indication: MYCOBACTERIUM AVIUM COMPLEX INFECTION
     Dosage: STANDARD DOSAGE
  6. ETHAMBUTOL HCL [Suspect]
     Indication: OSTEOMYELITIS
     Dosage: NOT REPORTED
  7. RIFABUTIN [Suspect]
     Indication: MYCOBACTERIUM AVIUM COMPLEX INFECTION
     Dosage: STANDARD DOSAGE
  8. RIFABUTIN [Suspect]
     Indication: OSTEOMYELITIS
  9. AMIKACIN [Suspect]
     Indication: MYCOBACTERIUM AVIUM COMPLEX INFECTION
     Dosage: 15MG/KG/DAY FOR 14 DAYS REPEATED EVERY 3 MONTHS
  10. AMIKACIN [Suspect]
     Indication: OSTEOMYELITIS
     Dosage: 5MG/KG/DAY FOR 14 DAYS EVERY 3 MONTHS
  11. AMOXICILLIN [Concomitant]
     Indication: UPPER RESPIRATORY TRACT INFECTION
     Dosage: 4 CYCLES FOR 14-21 DAYS WITHIN 18 MONTHS
  12. SULBACTAM [Concomitant]
     Indication: UPPER RESPIRATORY TRACT INFECTION
     Dosage: 4 CYCLES FOR 14-21 D WITHIN 18 MONTHS
     Route: 048
  13. CEFUROXIME [Concomitant]
     Indication: UPPER RESPIRATORY TRACT INFECTION
     Dosage: NOT REPORTED
  14. ACETYLCYSTEINE [Concomitant]
     Indication: UPPER RESPIRATORY TRACT INFECTION
     Dosage: NOT REPORTED
  15. ACYCLOVIR [Concomitant]
     Indication: HERPES VIRUS INFECTION
     Dosage: 3-15 MG/KG/DAY
     Route: 048
  16. CIPROFLOXACIN HCL [Concomitant]
     Indication: ENTERITIS
     Dosage: NOT REPORTED
     Route: 048

REACTIONS (9)
  - ANAEMIA HAEMOLYTIC AUTOIMMUNE [None]
  - ASTHENIA [None]
  - BODY TEMPERATURE INCREASED [None]
  - CONDITION AGGRAVATED [None]
  - CYANOSIS [None]
  - DRUG INEFFECTIVE [None]
  - ENCEPHALITIS HERPES [None]
  - MYCOBACTERIAL INFECTION [None]
  - TACHYCARDIA [None]
